FAERS Safety Report 12624435 (Version 2)
Quarter: 2016Q3

REPORT INFORMATION
  Report Type: Spontaneous
  Country: TW (occurrence: TW)
  Receive Date: 20160805
  Receipt Date: 20160816
  Transmission Date: 20161109
  Serious: Yes (Death, Other)
  Sender: FDA-Public Use
  Company Number: TW-ROCHE-1808720

PATIENT
  Age: 64 Year
  Sex: Male

DRUGS (11)
  1. ACTEMRA [Suspect]
     Active Substance: TOCILIZUMAB
     Indication: RHEUMATOID ARTHRITIS
     Route: 042
     Dates: start: 20160428, end: 20160523
  2. PLAQUENIL [Concomitant]
     Active Substance: HYDROXYCHLOROQUINE SULFATE
     Route: 065
     Dates: start: 20151119, end: 20160531
  3. COMPESOLON [Concomitant]
     Active Substance: PREDNISOLONE
     Dosage: 40 MG/DAY, SINCE COPD USING TO RHEUMATOLOGY
     Route: 065
     Dates: start: 20140701, end: 20160531
  4. IMURAN [Concomitant]
     Active Substance: AZATHIOPRINE
     Route: 065
     Dates: start: 20150331, end: 20160531
  5. THROUGH [Concomitant]
     Dosage: HS
     Route: 065
     Dates: start: 20160331, end: 20160531
  6. ARAVA [Suspect]
     Active Substance: LEFLUNOMIDE
     Indication: RHEUMATOID ARTHRITIS
     Route: 048
     Dates: start: 20160326, end: 20160531
  7. ARCOXIA [Concomitant]
     Active Substance: ETORICOXIB
     Route: 048
     Dates: start: 20151020
  8. PREDNISOLONE. [Suspect]
     Active Substance: PREDNISOLONE
     Indication: CHRONIC OBSTRUCTIVE PULMONARY DISEASE
     Dosage: WHEN ADMISSION?COPD PT, LONG TERM USING
     Route: 042
  9. XANTHIUM [Concomitant]
     Route: 065
     Dates: start: 20140820
  10. PREDNISOLONE. [Suspect]
     Active Substance: PREDNISOLONE
     Indication: RHEUMATOID ARTHRITIS
     Route: 048
     Dates: start: 201510, end: 20160531
  11. AZA [Suspect]
     Active Substance: AZATHIOPRINE
     Indication: RHEUMATOID ARTHRITIS
     Route: 048
     Dates: start: 20160326, end: 20160531

REACTIONS (8)
  - Infective spondylitis [Unknown]
  - Acute respiratory distress syndrome [Unknown]
  - Upper gastrointestinal haemorrhage [Unknown]
  - Shock [Unknown]
  - Sepsis [Fatal]
  - Acute kidney injury [Unknown]
  - Pneumonia [Unknown]
  - Muscle abscess [Unknown]

NARRATIVE: CASE EVENT DATE: 20160531
